FAERS Safety Report 21337881 (Version 1)
Quarter: 2022Q3

REPORT INFORMATION
  Report Type: Spontaneous
  Country: US (occurrence: None)
  Receive Date: 20220915
  Receipt Date: 20220915
  Transmission Date: 20221027
  Serious: Yes (Other)
  Sender: FDA-Public Use
  Company Number: None

PATIENT
  Age: 67 Year
  Sex: Female
  Weight: 68.4 kg

DRUGS (7)
  1. PACLITAXEL [Suspect]
     Active Substance: PACLITAXEL
     Indication: Breast cancer female
     Dosage: OTHER FREQUENCY : WEEKLY;?
     Route: 041
     Dates: start: 20220913, end: 20220913
  2. FAMOTIDINE [Concomitant]
     Active Substance: FAMOTIDINE
     Dates: start: 20220913, end: 20220913
  3. DIPHENHYDRAMINE [Concomitant]
     Active Substance: DIPHENHYDRAMINE
     Dates: start: 20220913, end: 20220913
  4. DEXAMETHASONE [Concomitant]
     Active Substance: DEXAMETHASONE
     Dates: start: 20220913, end: 20220913
  5. DEXAMETHASONE [Concomitant]
     Active Substance: DEXAMETHASONE
     Dates: start: 20220913, end: 20220913
  6. ONTRUZANT [Concomitant]
     Active Substance: TRASTUZUMAB-DTTB
     Dates: start: 20220913, end: 20220913
  7. PERJETA [Concomitant]
     Active Substance: PERTUZUMAB
     Dates: start: 20220913, end: 20220913

REACTIONS (5)
  - Infusion related reaction [None]
  - Flushing [None]
  - Feeling abnormal [None]
  - Therapy cessation [None]
  - Head discomfort [None]

NARRATIVE: CASE EVENT DATE: 20220913
